FAERS Safety Report 16470277 (Version 3)
Quarter: 2019Q3

REPORT INFORMATION
  Report Type: Report from Study
  Country: CA (occurrence: CA)
  Receive Date: 20190624
  Receipt Date: 20190717
  Transmission Date: 20191004
  Serious: Yes (Hospitalization)
  Sender: FDA-Public Use
  Company Number: CA-PFIZER INC-2019234291

PATIENT
  Age: 68 Year
  Sex: Female

DRUGS (1)
  1. TEMSIROLIMUS. [Suspect]
     Active Substance: TEMSIROLIMUS
     Indication: COLORECTAL CANCER
     Dosage: 25 MG, WEEKLY
     Route: 042
     Dates: start: 20190521, end: 20190521

REACTIONS (2)
  - Acute kidney injury [Recovered/Resolved]
  - Lung infection [Recovered/Resolved]

NARRATIVE: CASE EVENT DATE: 20190528
